FAERS Safety Report 9123735 (Version 1)
Quarter: 2013Q1

REPORT INFORMATION
  Report Type: Spontaneous
  Country: US (occurrence: US)
  Receive Date: 20130227
  Receipt Date: 20130227
  Transmission Date: 20140127
  Serious: Yes (Other)
  Sender: FDA-Public Use
  Company Number: US-JNJFOC-20130213179

PATIENT
  Age: 3 Year
  Sex: Male

DRUGS (1)
  1. TRAMADOL HYDROCHLORIDE [Suspect]
     Indication: ACCIDENTAL EXPOSURE TO PRODUCT
     Route: 048

REACTIONS (10)
  - Overdose [Unknown]
  - Mental status changes [Unknown]
  - Dyspnoea [Unknown]
  - Ataxia [Unknown]
  - Abasia [Unknown]
  - Depressed level of consciousness [Recovered/Resolved]
  - Vomiting [Unknown]
  - Protrusion tongue [Unknown]
  - Somnolence [Unknown]
  - Drug screen positive [Unknown]
